FAERS Safety Report 16129580 (Version 1)
Quarter: 2019Q1

REPORT INFORMATION
  Report Type: Report from Study
  Country: US (occurrence: US)
  Receive Date: 20190328
  Receipt Date: 20190328
  Transmission Date: 20190418
  Serious: Yes (Hospitalization)
  Sender: FDA-Public Use
  Company Number: US-CELGENEUS-USA-20190308895

PATIENT
  Age: 37 Year
  Sex: Female
  Weight: 119.7 kg

DRUGS (1)
  1. REVLIMID [Suspect]
     Active Substance: LENALIDOMIDE
     Indication: MYELODYSPLASTIC SYNDROME
     Dosage: 10 MILLIGRAM
     Route: 048
     Dates: start: 20180611, end: 20180625

REACTIONS (1)
  - Vulval cellulitis [Recovered/Resolved]

NARRATIVE: CASE EVENT DATE: 20180625
